FAERS Safety Report 9867992 (Version 2)
Quarter: 2014Q1

REPORT INFORMATION
  Report Type: Report from Study
  Country: US (occurrence: US)
  Receive Date: 20140204
  Receipt Date: 20140220
  Transmission Date: 20141002
  Serious: Yes (Hospitalization, Other)
  Sender: FDA-Public Use
  Company Number: PHEH2014US002195

PATIENT
  Sex: Female

DRUGS (4)
  1. GLEEVEC [Suspect]
     Indication: ACUTE LYMPHOCYTIC LEUKAEMIA
     Dosage: 400 MG, DAILY
     Route: 048
  2. GLEEVEC [Suspect]
     Dosage: UNK UKN, UNK
  3. GLEEVEC [Suspect]
     Dosage: UNK UKN, UNK
  4. GLEEVEC [Suspect]
     Dosage: UNK UKN, UNK

REACTIONS (7)
  - Liver disorder [Unknown]
  - Acute lymphocytic leukaemia [Unknown]
  - Malignant neoplasm progression [Unknown]
  - Swelling face [Unknown]
  - Erythema [Unknown]
  - No therapeutic response [Unknown]
  - Malaise [Unknown]
